FAERS Safety Report 14711208 (Version 1)
Quarter: 2018Q1

REPORT INFORMATION
  Report Type: Spontaneous
  Country: US (occurrence: US)
  Receive Date: 20180330
  Receipt Date: 20180330
  Transmission Date: 20180509
  Serious: No
  Sender: FDA-Public Use
  Company Number: None

PATIENT
  Age: 46 Year
  Sex: Female
  Weight: 64.35 kg

DRUGS (2)
  1. LITHIUM CARBONATE. [Suspect]
     Active Substance: LITHIUM CARBONATE
  2. BP PRESSURE HOLISTIC MEDICINE [Concomitant]

REACTIONS (7)
  - Tremor [None]
  - Weight increased [None]
  - Visual impairment [None]
  - Somnolence [None]
  - Stress [None]
  - Memory impairment [None]
  - Crying [None]

NARRATIVE: CASE EVENT DATE: 20180301
